FAERS Safety Report 17796943 (Version 3)
Quarter: 2020Q3

REPORT INFORMATION
  Report Type: Report from Study
  Country: CA (occurrence: CA)
  Receive Date: 20200518
  Receipt Date: 20200702
  Transmission Date: 20201102
  Serious: Yes (Hospitalization)
  Sender: FDA-Public Use
  Company Number: CA-BEH-2020117328

PATIENT
  Age: 27 Year
  Sex: Male
  Weight: 77 kg

DRUGS (7)
  1. HAEMATE P [Suspect]
     Active Substance: ANTIHEMOPHILIC FACTOR HUMAN
     Indication: VON WILLEBRAND^S DISEASE
     Dosage: 3000 RCOF, QD
     Route: 042
     Dates: end: 20200516
  2. HAEMATE P [Suspect]
     Active Substance: ANTIHEMOPHILIC FACTOR HUMAN
     Indication: PROPHYLAXIS
     Dosage: 2179 RCOF
     Route: 042
  3. HAEMATE P [Suspect]
     Active Substance: ANTIHEMOPHILIC FACTOR HUMAN
     Indication: VON WILLEBRAND^S DISEASE
     Dosage: 3000 RCOF, QD
     Route: 042
     Dates: end: 20200516
  4. HAEMATE P [Suspect]
     Active Substance: ANTIHEMOPHILIC FACTOR HUMAN
     Indication: PROPHYLAXIS
     Dosage: 2179 RCOF
     Route: 042
  5. METHADONE [Concomitant]
     Active Substance: METHADONE HYDROCHLORIDE
     Indication: PRODUCT USED FOR UNKNOWN INDICATION
  6. NIFEDIPINE. [Concomitant]
     Active Substance: NIFEDIPINE
  7. SEROQUEL [Concomitant]
     Active Substance: QUETIAPINE FUMARATE

REACTIONS (14)
  - Ear haemorrhage [Recovering/Resolving]
  - Victim of crime [Recovering/Resolving]
  - Muscle haemorrhage [Recovering/Resolving]
  - Injection site nodule [Recovering/Resolving]
  - Poor venous access [Recovering/Resolving]
  - Contusion [Recovering/Resolving]
  - Dehydration [Recovering/Resolving]
  - Jaw operation [Recovering/Resolving]
  - Injection site erythema [Recovering/Resolving]
  - Tooth injury [Recovering/Resolving]
  - Cold sweat [Recovering/Resolving]
  - Anxiety [Recovering/Resolving]
  - Fear of injection [Recovering/Resolving]
  - Injection site phlebitis [Recovering/Resolving]

NARRATIVE: CASE EVENT DATE: 202005
